FAERS Safety Report 5558404-X (Version None)
Quarter: 2007Q4

REPORT INFORMATION
  Report Type: 
  Country: None (occurrence: None)
  Receive Date: 20071214
  Receipt Date: 20071114
  Transmission Date: 20080405
  Serious: No
  Sender: FDA-Public Use
  Company Number: US-ABBOTT-07P-163-0363259-00

PATIENT
  Sex: Female
  Weight: 57.658 kg

DRUGS (8)
  1. HUMIRA [Suspect]
     Indication: RHEUMATOID ARTHRITIS
     Route: 058
     Dates: start: 20061201
  2. METHOTREXATE SODIUM [Concomitant]
     Indication: RHEUMATOID ARTHRITIS
     Route: 048
  3. PANTOPRAZOLE SODIUM [Concomitant]
     Indication: GASTRIC DISORDER
     Route: 048
  4. RALOXIFENE HYDROCHLORIDE [Concomitant]
     Indication: OSTEOARTHRITIS
     Route: 048
  5. DETROL LA [Concomitant]
     Indication: DRUG USE FOR UNKNOWN INDICATION
     Route: 048
  6. CETIRIZINE HYDROCHLORIDE [Concomitant]
     Indication: HYPERSENSITIVITY
     Route: 048
  7. ASPIRIN [Concomitant]
     Indication: DRUG USE FOR UNKNOWN INDICATION
     Route: 048
  8. VICODIN [Concomitant]
     Indication: PAIN
     Route: 048

REACTIONS (12)
  - ASTHENIA [None]
  - BACK PAIN [None]
  - BLOOD BLISTER [None]
  - DEPRESSION [None]
  - IMPAIRED HEALING [None]
  - INJECTION SITE BRUISING [None]
  - MALAISE [None]
  - NECK PAIN [None]
  - PAIN IN EXTREMITY [None]
  - PALLOR [None]
  - PARAESTHESIA [None]
  - TENDERNESS [None]
